FAERS Safety Report 9837611 (Version 1)
Quarter: 2014Q1

REPORT INFORMATION
  Report Type: Spontaneous
  Country: US (occurrence: None)
  Receive Date: 20140117
  Receipt Date: 20140117
  Transmission Date: 20141002
  Serious: Yes (Other)
  Sender: FDA-Public Use
  Company Number: None

PATIENT
  Age: 6 Year
  Sex: Female
  Weight: 21.77 kg

DRUGS (1)
  1. CONCERTA [Suspect]
     Indication: ATTENTION DEFICIT/HYPERACTIVITY DISORDER
     Dosage: 1 PILL  ONCE DAILY TAKEN BY MOUTH
     Route: 048

REACTIONS (4)
  - Abnormal behaviour [None]
  - Condition aggravated [None]
  - Product substitution issue [None]
  - Drug ineffective [None]
